FAERS Safety Report 7648597-2 (Version None)
Quarter: 2011Q3

REPORT INFORMATION
  Report Type: 
  Country: None (occurrence: None)
  Receive Date: 20110801
  Receipt Date: 20110718
  Transmission Date: 20111222
  Serious: Yes (Other)
  Sender: FDA-Public Use
  Company Number: PHFR2011GB02001

PATIENT
  Sex: Female

DRUGS (3)
  1. CLOZAPINE [Suspect]
     Indication: SCHIZOPHRENIA
     Dosage: 225 MG, DAILY
     Route: 048
     Dates: start: 20110121, end: 20110316
  2. LAMOTRIGINE [Concomitant]
     Dosage: 400 MG, DAILY
     Route: 048
  3. CLONAZEPAM [Concomitant]
     Dosage: 1 MG, DAILY
     Route: 048

REACTIONS (4)
  - NEUTROPHIL COUNT DECREASED [None]
  - TOOTH INFECTION [None]
  - WHITE BLOOD CELL COUNT DECREASED [None]
  - TACHYCARDIA [None]
